FAERS Safety Report 5289415-X (Version None)
Quarter: 2007Q2

REPORT INFORMATION
  Report Type: 
  Country: None (occurrence: None)
  Receive Date: 20070406
  Receipt Date: 20070404
  Transmission Date: 20071010
  Serious: Yes (Hospitalization)
  Sender: FDA-Public Use
  Company Number: DEWYE360405APR07

PATIENT
  Sex: Female
  Weight: 75 kg

DRUGS (1)
  1. VENLAFAXINE HCL [Suspect]
     Dosage: 35 CAPSULES (OVERDOSE AMOUNT 5250 MG)
     Route: 048
     Dates: start: 20070401, end: 20070401

REACTIONS (6)
  - CHILLS [None]
  - DIZZINESS [None]
  - HYPOTENSION [None]
  - INTENTIONAL OVERDOSE [None]
  - METAL FUME FEVER [None]
  - TACHYCARDIA [None]
